FAERS Safety Report 8581163 (Version 9)
Quarter: 2013Q2

REPORT INFORMATION
  Report Type: Spontaneous
  Country: US (occurrence: US)
  Receive Date: 20120525
  Receipt Date: 20130402
  Transmission Date: 20140414
  Serious: Yes (Other)
  Sender: FDA-Public Use
  Company Number: US-BAYER-2012-051510

PATIENT
  Age: 45 Year
  Sex: Female
  Weight: 68 kg

DRUGS (16)
  1. MAGNEVIST [Suspect]
     Indication: NUCLEAR MAGNETIC RESONANCE IMAGING
     Dosage: UNK
  2. MAGNEVIST [Suspect]
     Indication: ANGIOGRAM
  3. OMNISCAN [Suspect]
     Indication: NUCLEAR MAGNETIC RESONANCE IMAGING
     Dosage: 15 ML, UNK
     Dates: start: 20020823, end: 20020823
  4. OMNISCAN [Suspect]
     Indication: ANGIOGRAM
  5. OMNISCAN [Suspect]
     Indication: NUCLEAR MAGNETIC RESONANCE IMAGING BRAIN
  6. OPTIMARK [Suspect]
     Indication: NUCLEAR MAGNETIC RESONANCE IMAGING
  7. OPTIMARK [Suspect]
     Indication: ANGIOGRAM
  8. MULTIHANCE [GADOBENIC ACID MEGLUMINE] [Suspect]
     Indication: NUCLEAR MAGNETIC RESONANCE IMAGING
  9. MULTIHANCE [GADOBENIC ACID MEGLUMINE] [Suspect]
     Indication: ANGIOGRAM
  10. PROHANCE [GADOTERIDOL] [Suspect]
     Indication: NUCLEAR MAGNETIC RESONANCE IMAGING
  11. PROHANCE [GADOTERIDOL] [Suspect]
     Indication: ANGIOGRAM
  12. GADOLINIUM IN UNSPECIFIED DRUG [Suspect]
     Dosage: UNK
     Dates: start: 2004
  13. RENAGEL [SEVELAMER] [Concomitant]
     Dosage: 800 MG, UNK
  14. METOPROLOL [Concomitant]
     Indication: HYPERTENSION
     Dosage: 50 MG, UNK
  15. GABAPENTIN [Concomitant]
     Indication: NEURALGIA
     Dosage: 100 MG, UNK
  16. SENSIPAR [Concomitant]
     Dosage: 60 MG, UNK

REACTIONS (32)
  - Nephrogenic systemic fibrosis [None]
  - Fibrosis [None]
  - Skin induration [None]
  - Skin plaque [None]
  - Pruritus [None]
  - Skin ulcer [None]
  - Skin tightness [None]
  - Skin hypertrophy [None]
  - Arthralgia [None]
  - Joint contracture [None]
  - Myosclerosis [None]
  - Tendon disorder [None]
  - Dry skin [None]
  - Pain in extremity [None]
  - Coordination abnormal [None]
  - Skin discolouration [None]
  - Impaired healing [None]
  - Mobility decreased [None]
  - Muscular weakness [None]
  - Gait disturbance [None]
  - Scab [None]
  - Oedema peripheral [None]
  - Skin warm [None]
  - Rash papular [None]
  - Erythema [None]
  - Pain in extremity [None]
  - Deformity [None]
  - Disability [None]
  - Anxiety [None]
  - Emotional distress [None]
  - General physical health deterioration [None]
  - Injury [None]
